FAERS Safety Report 25741371 (Version 1)
Quarter: 2025Q3

REPORT INFORMATION
  Report Type: Spontaneous
  Country: US (occurrence: US)
  Receive Date: 20250829
  Receipt Date: 20250829
  Transmission Date: 20251021
  Serious: Yes (Life-Threatening, Other)
  Sender: BAYER HEALTHCARE LLC
  Company Number: US-BAYER-2025A113959

PATIENT
  Age: 54 Year
  Sex: Male

DRUGS (2)
  1. TINACTIN [Suspect]
     Active Substance: TOLNAFTATE
     Dates: start: 1980
  2. MENTHOL\ZINC OXIDE [Concomitant]
     Active Substance: MENTHOL\ZINC OXIDE
     Dates: start: 1980

REACTIONS (3)
  - Mesothelioma [Not Recovered/Not Resolved]
  - Pain [None]
  - Anxiety [None]

NARRATIVE: CASE EVENT DATE: 20250611
